FAERS Safety Report 4428313-8 (Version None)
Quarter: 2004Q3

REPORT INFORMATION
  Report Type: 
  Country: None (occurrence: None)
  Receive Date: 20040818
  Receipt Date: 20040806
  Transmission Date: 20050211
  Serious: Yes (Death)
  Sender: FDA-Public Use
  Company Number: US-JNJFOC-20040802318

PATIENT
  Sex: Female

DRUGS (5)
  1. INFLIXIMAB [Suspect]
     Indication: RHEUMATOID ARTHRITIS
     Route: 042
  2. WYGESIC [Concomitant]
  3. WYGESIC [Concomitant]
  4. GOLD INJECTIONS [Concomitant]
  5. PREDNISONE [Concomitant]

REACTIONS (1)
  - DEATH [None]
